FAERS Safety Report 19202173 (Version 2)
Quarter: 2021Q2

REPORT INFORMATION
  Report Type: Spontaneous
  Country: GB (occurrence: GB)
  Receive Date: 20210430
  Receipt Date: 20210510
  Transmission Date: 20210717
  Serious: Yes (Other)
  Sender: FDA-Public Use
  Company Number: GB-TEVA-2021-GB-1906029

PATIENT
  Sex: Female

DRUGS (4)
  1. LIOTHYRONINE [Suspect]
     Active Substance: LIOTHYRONINE
     Dosage: 40 UG, (NEW BATCH TABLET; 20UG IN THE MORNING, 10UG IN THE AFTERNOON, 10UG IN THE EVENING)
     Route: 048
     Dates: start: 202012
  2. ESTROGEL [Concomitant]
     Active Substance: ESTRADIOL
     Indication: HORMONE THERAPY
     Dosage: 4 DOSAGE FORMS DAILY; 2 DOSAGE FORM, BID (2 PUMPS IN MORNING AND 2 IN THE EVENING EVERY DAY)
  3. LIOTHYRONINE [Suspect]
     Active Substance: LIOTHYRONINE
     Indication: HYPOTHYROIDISM
     Dosage: 40MCG
     Route: 048
     Dates: start: 2012
  4. DESOGESTREL [Concomitant]
     Active Substance: DESOGESTREL
     Indication: HORMONE THERAPY
     Dosage: DAY 15 TO DAY 28, SINCE 18 MONTHS

REACTIONS (17)
  - Migraine [Not Recovered/Not Resolved]
  - Decreased appetite [Not Recovered/Not Resolved]
  - Nail pitting [Not Recovered/Not Resolved]
  - Restless legs syndrome [Not Recovered/Not Resolved]
  - Asthenia [Not Recovered/Not Resolved]
  - Disease recurrence [Unknown]
  - Feeling cold [Not Recovered/Not Resolved]
  - Weight increased [Not Recovered/Not Resolved]
  - Dyspepsia [Not Recovered/Not Resolved]
  - Dry skin [Not Recovered/Not Resolved]
  - Constipation [Not Recovered/Not Resolved]
  - Depression [Not Recovered/Not Resolved]
  - Depressed mood [Not Recovered/Not Resolved]
  - Hypothyroidism [Not Recovered/Not Resolved]
  - Bedridden [Not Recovered/Not Resolved]
  - Alopecia [Not Recovered/Not Resolved]
  - Anxiety [Not Recovered/Not Resolved]

NARRATIVE: CASE EVENT DATE: 202012
